FAERS Safety Report 9966997 (Version 2)
Quarter: 2014Q1

REPORT INFORMATION
  Report Type: Spontaneous
  Country: US (occurrence: US)
  Receive Date: 20140305
  Receipt Date: 20140320
  Transmission Date: 20141002
  Serious: Yes (Other)
  Sender: FDA-Public Use
  Company Number: US-GILEAD-2014-0095967

PATIENT
  Sex: Female

DRUGS (12)
  1. LETAIRIS [Suspect]
     Indication: PULMONARY HYPERTENSION
     Dosage: 5 MG, QD
     Route: 048
     Dates: start: 20131015, end: 20140221
  2. LETAIRIS [Suspect]
     Indication: CONNECTIVE TISSUE DISORDER
  3. CRESTOR [Concomitant]
  4. CELEBREX [Concomitant]
  5. PROCARDIA                          /00340701/ [Concomitant]
  6. PRILOSEC                           /00661201/ [Concomitant]
  7. PREDNISONE [Concomitant]
  8. GLUCOPHAGE [Concomitant]
  9. LASIX                              /00032601/ [Concomitant]
  10. POTASSIUM [Concomitant]
  11. TYLENOL W/CODEINE NO. 4 [Concomitant]
  12. OXYGEN [Concomitant]

REACTIONS (2)
  - Drug ineffective [Unknown]
  - Dyspnoea [Unknown]
